FAERS Safety Report 24113435 (Version 1)
Quarter: 2024Q3

REPORT INFORMATION
  Report Type: Spontaneous
  Country: CN (occurrence: CN)
  Receive Date: 20240720
  Receipt Date: 20240720
  Transmission Date: 20241016
  Serious: Yes (Other)
  Sender: NOVARTIS
  Company Number: CN-002147023-NVSC2024CN148491

PATIENT
  Age: 82 Year
  Sex: Female
  Weight: 39.9 kg

DRUGS (1)
  1. CARBAMAZEPINE [Suspect]
     Active Substance: CARBAMAZEPINE
     Indication: Post herpetic neuralgia
     Dosage: 200 MG, QD
     Route: 048
     Dates: start: 20240706, end: 20240706

REACTIONS (3)
  - Mental impairment [Recovered/Resolved]
  - Blood pressure diastolic increased [Recovering/Resolving]
  - Blood pressure systolic increased [Recovering/Resolving]

NARRATIVE: CASE EVENT DATE: 20240706
